FAERS Safety Report 7487521-2 (Version None)
Quarter: 2011Q2

REPORT INFORMATION
  Report Type: 
  Country: None (occurrence: None)
  Receive Date: 20110518
  Receipt Date: 20110509
  Transmission Date: 20111010
  Serious: Yes (Hospitalization)
  Sender: FDA-Public Use
  Company Number: US-B.I. PHARMACEUTICALS,INC./RIDGEFIELD-2011-BP-06143BP

PATIENT
  Sex: Male
  Weight: 115.6 kg

DRUGS (12)
  1. K-DUR [Concomitant]
  2. CRESTOR [Concomitant]
  3. AMIODARONE HCL [Concomitant]
  4. LISINOPRIL [Concomitant]
  5. LASIX [Concomitant]
  6. PROTONIX [Concomitant]
  7. COZAAR [Concomitant]
  8. ASPIRIN [Suspect]
     Dosage: 81 MG
  9. PLAVIX [Suspect]
     Dosage: 75 MG
     Dates: end: 20110303
  10. COREG [Concomitant]
  11. ZOCOR [Concomitant]
  12. PRADAXA [Suspect]
     Indication: ATRIAL FIBRILLATION
     Dosage: 150 MG
     Route: 048
     Dates: start: 20110101, end: 20110303

REACTIONS (8)
  - GASTROINTESTINAL HAEMORRHAGE [None]
  - HAEMATOCHEZIA [None]
  - ANAEMIA [None]
  - RENAL FAILURE ACUTE [None]
  - WEIGHT INCREASED [None]
  - VARICOSE VEIN [None]
  - OEDEMA [None]
  - COAGULOPATHY [None]
